FAERS Safety Report 9119268 (Version 1)
Quarter: 2013Q1

REPORT INFORMATION
  Report Type: Spontaneous
  Country: IT (occurrence: IT)
  Receive Date: 20130226
  Receipt Date: 20130226
  Transmission Date: 20140127
  Serious: Yes (Hospitalization)
  Sender: FDA-Public Use
  Company Number: PHHY2013IT017857

PATIENT
  Sex: Female

DRUGS (9)
  1. EXELON PATCH [Suspect]
     Dosage: 9.5 MG, DAILY
     Route: 062
     Dates: start: 20111122
  2. SINEMET [Suspect]
     Dosage: 1 DF, (100MG+25MG), DAILY
     Route: 048
     Dates: start: 20121122, end: 20121122
  3. SEROQUEL [Suspect]
     Dosage: 25 MG, DAILY
     Route: 048
     Dates: start: 20111122
  4. TRIATEC [Concomitant]
  5. LANSOX [Concomitant]
  6. XANAX [Concomitant]
  7. LANTUS [Concomitant]
  8. CARDIOASPIRIN [Concomitant]
  9. NOVORAPID [Concomitant]

REACTIONS (1)
  - Orthostatic hypotension [Recovered/Resolved]
